FAERS Safety Report 8476021-9 (Version None)
Quarter: 2012Q2

REPORT INFORMATION
  Report Type: 
  Country: None (occurrence: None)
  Receive Date: 20120622
  Receipt Date: 20120606
  Transmission Date: 20120825
  Serious: Yes (Other)
  Sender: FDA-Public Use
  Company Number: 2012000102

PATIENT
  Age: 45 Year
  Sex: Female
  Weight: 50 kg

DRUGS (1)
  1. ACEON [Suspect]
     Indication: HYPERTENSION
     Dosage: 8 MG, QD, ORAL
     Route: 048
     Dates: start: 20120208, end: 20120218

REACTIONS (4)
  - ASTHENIA [None]
  - ANGINA PECTORIS [None]
  - PRODUCT SUBSTITUTION ISSUE [None]
  - HEADACHE [None]
